FAERS Safety Report 21018409 (Version 4)
Quarter: 2025Q1

REPORT INFORMATION
  Report Type: Spontaneous
  Country: FR (occurrence: FR)
  Receive Date: 20220628
  Receipt Date: 20250131
  Transmission Date: 20250408
  Serious: Yes (Death, Hospitalization, Other)
  Sender: MYLAN
  Company Number: FR-Indivior Limited-INDV-134654-2022

PATIENT
  Age: 34 Year
  Sex: Female

DRUGS (29)
  1. MIRTAZAPINE [Suspect]
     Active Substance: MIRTAZAPINE
     Indication: Product used for unknown indication
     Dosage: 45 MILLIGRAM, QD, 15 MILLIGRAM, TID
     Route: 065
  2. MIRTAZAPINE [Suspect]
     Active Substance: MIRTAZAPINE
     Dosage: 15 MILLIGRAM, QD (3 TABLETS ? BEDTIME (9 P.M.)
     Route: 065
  3. BUSPIRONE [Suspect]
     Active Substance: BUSPIRONE HYDROCHLORIDE
     Indication: Depression
     Dosage: 3 MILLIGRAM, QD, 1 MILLIGRAM, TID
     Route: 065
  4. BUSPIRONE [Suspect]
     Active Substance: BUSPIRONE HYDROCHLORIDE
     Dosage: 10 MILLIGRAM, QD 1 TABLET - MORNING (8 A.M.) // 1-AFTERNOON// 1- EVENING (6 P.M.)
     Route: 065
  5. ALCOHOL [Suspect]
     Active Substance: ALCOHOL
     Indication: Product used for unknown indication
     Route: 065
  6. SUBUTEX [Suspect]
     Active Substance: BUPRENORPHINE HYDROCHLORIDE
     Indication: Drug dependence
     Dosage: 2 MILLIGRAM, QID (MORNING, NOON, 4 PM AND EVENING)
     Route: 060
     Dates: start: 20181017
  7. SUBUTEX [Suspect]
     Active Substance: BUPRENORPHINE HYDROCHLORIDE
     Route: 065
     Dates: end: 20181020
  8. SUBUTEX [Suspect]
     Active Substance: BUPRENORPHINE HYDROCHLORIDE
     Route: 060
     Dates: start: 20181018
  9. SUBUTEX [Suspect]
     Active Substance: BUPRENORPHINE HYDROCHLORIDE
     Dosage: 2 MILLIGRAM, QID (MORNING, NOON, 4 PM AND EVENING)
     Route: 060
     Dates: start: 20181019
  10. SUBUTEX [Suspect]
     Active Substance: BUPRENORPHINE HYDROCHLORIDE
     Dosage: 2 MILLIGRAM, BID (THREE IN MORNING AND ONE IN EVENING)
     Route: 060
     Dates: start: 20181020
  11. BRINTELLIX [Suspect]
     Active Substance: VORTIOXETINE HYDROBROMIDE
     Indication: Product used for unknown indication
     Dosage: 20 MILLIGRAM, QD 1 TABLET - MORNING (8AM)
     Route: 065
  12. OXAZEPAM [Suspect]
     Active Substance: OXAZEPAM
     Indication: Product used for unknown indication
     Dosage: 150 MILLIGRAM, QD, 50 MILLIGRAM, TID
     Route: 065
  13. OXAZEPAM [Suspect]
     Active Substance: OXAZEPAM
     Dosage: 50 MILLIGRAM, QID 1 TABLET - MORNING (8AM) // 1 - MIDDAY//1 - EVENING (6PM) //1 - BEDTIME (9PM)
     Route: 065
  14. NICOTINE [Suspect]
     Active Substance: NICOTINE
     Indication: Product used for unknown indication
     Route: 065
  15. BUSPIRONE HYDROCHLORIDE [Suspect]
     Active Substance: BUSPIRONE HYDROCHLORIDE
     Indication: Depression
     Dosage: 3 MILLIGRAM, QD (1 MILLIGRAM, TID)
     Route: 065
  16. ZOPICLONE [Suspect]
     Active Substance: ZOPICLONE
     Indication: Product used for unknown indication
     Route: 065
  17. OXAZEPAM [Suspect]
     Active Substance: OXAZEPAM
     Indication: Product used for unknown indication
     Route: 065
  18. DAFALGAN [Suspect]
     Active Substance: ACETAMINOPHEN
     Indication: Product used for unknown indication
     Dosage: 500 MILLIGRAM, QD AS NEEDED 2 CAPSULES MAXIMUM PER DOSE ? 6 CAPSULES MAXIMUM PER DAY
     Route: 065
  19. VALPROIC ACID [Suspect]
     Active Substance: VALPROIC ACID
     Indication: Product used for unknown indication
     Route: 065
  20. ARIPIPRAZOLE [Concomitant]
     Active Substance: ARIPIPRAZOLE
     Indication: Bipolar disorder
     Dosage: 20 MILLIGRAM, QD, 10 MILLIGRAM, BID
     Route: 065
  21. TRIHEXYPHENIDYL HYDROCHLORIDE [Concomitant]
     Active Substance: TRIHEXYPHENIDYL HYDROCHLORIDE
     Indication: Bipolar disorder
     Dosage: 5 MILLIGRAM, QD (2 CAPSULES - EVENING (6 PM) )
     Route: 065
  22. DEPAKOTE [Concomitant]
     Active Substance: DIVALPROEX SODIUM
     Indication: Bipolar disorder
     Route: 065
  23. DEPAKOTE [Concomitant]
     Active Substance: DIVALPROEX SODIUM
     Dosage: 500 MILLIGRAM, QD 1 TABLET - MORNING (8AM) OR 2 AT EVENING 6PM
     Route: 065
  24. CYAMEMAZINE [Concomitant]
     Active Substance: CYAMEMAZINE
     Indication: Product used for unknown indication
     Dosage: 75 MILLIGRAM, QD, 25 MILLIGRAM, TID
     Route: 065
  25. CYAMEMAZINE [Concomitant]
     Active Substance: CYAMEMAZINE
     Dosage: 25 MILLIGRAM, QD 1 TABLET MAXIMUM PER DOSE - 3 TABLETS MAXIMUM PER DAY
     Route: 065
  26. ALCOHOL [Concomitant]
     Active Substance: ALCOHOL
     Indication: Product used for unknown indication
     Route: 065
  27. Transipeg [Concomitant]
     Indication: Product used for unknown indication
     Dosage: 5.9, GRAM, QD 2 SACHETS - MORNING (8AM)
     Route: 048
  28. IMOVANE [Concomitant]
     Active Substance: ZOPICLONE
     Indication: Product used for unknown indication
     Dosage: 7.5 MILLIGRAM, QD (1 TABLET - BEDTIME (9PM))
     Route: 065
  29. TRIMEPRAZINE [Concomitant]
     Active Substance: TRIMEPRAZINE
     Indication: Product used for unknown indication
     Dosage: 5 MILLIGRAM, QD (4 TABLETS - BEDTIME (9 P.M.) AS NEEDED)
     Route: 065

REACTIONS (7)
  - Toxicity to various agents [Fatal]
  - Overdose [Fatal]
  - Serotonin syndrome [Fatal]
  - Drug abuse [Unknown]
  - Cardiac failure [Unknown]
  - Intentional product use issue [Unknown]
  - Inappropriate schedule of product administration [Recovered/Resolved]

NARRATIVE: CASE EVENT DATE: 20181019
